FAERS Safety Report 4770580-5 (Version None)
Quarter: 2005Q3

REPORT INFORMATION
  Report Type: 
  Country: None (occurrence: None)
  Receive Date: 20050915
  Receipt Date: 20050909
  Transmission Date: 20060218
  Serious: Yes (Other)
  Sender: FDA-Public Use
  Company Number: CA-MERCK-0509USA01106

PATIENT
  Age: 7 Year
  Sex: Male

DRUGS (3)
  1. SINGULAIR [Suspect]
     Route: 048
  2. VENTOLIN [Concomitant]
     Route: 055
  3. CHLOR-TRIPOLON [Concomitant]
     Route: 048

REACTIONS (3)
  - ABDOMINAL PAIN [None]
  - ADVERSE EVENT [None]
  - ASTHMA [None]
